FAERS Safety Report 6563772-6 (Version None)
Quarter: 2010Q1

REPORT INFORMATION
  Report Type: 
  Country: None (occurrence: None)
  Receive Date: 20100130
  Receipt Date: 20091229
  Transmission Date: 20100710
  Serious: No
  Sender: FDA-Public Use
  Company Number: US-ABBOTT-09P-163-0617142-00

PATIENT
  Sex: Male

DRUGS (1)
  1. HUMIRA [Suspect]
     Indication: PSORIASIS
     Dates: start: 20080101, end: 20091212

REACTIONS (5)
  - BODY TEMPERATURE DECREASED [None]
  - COUGH [None]
  - FATIGUE [None]
  - INFLUENZA [None]
  - VOMITING [None]
